FAERS Safety Report 6252978-1 (Version None)
Quarter: 2009Q2

REPORT INFORMATION
  Report Type: 
  Country: None (occurrence: None)
  Receive Date: 20090629
  Receipt Date: 20090629
  Transmission Date: 20091009
  Serious: No
  Sender: FDA-Public Use
  Company Number: None

PATIENT
  Age: 50 Year
  Sex: Female
  Weight: 79.3795 kg

DRUGS (1)
  1. ZICAM ZINCUM GLUCONICUM 2X MATRIXX INITIATIVES, INC. [Suspect]
     Indication: NASOPHARYNGITIS
     Dosage: ONE PUMP EVERY 4 HOURS NASAL
     Route: 045
     Dates: start: 19981001, end: 20081101

REACTIONS (3)
  - BURNING SENSATION [None]
  - EPISTAXIS [None]
  - HYPOSMIA [None]
